FAERS Safety Report 11610640 (Version 1)
Quarter: 2015Q4

REPORT INFORMATION
  Report Type: Spontaneous
  Country: GB (occurrence: GB)
  Receive Date: 20151008
  Receipt Date: 20151008
  Transmission Date: 20160304
  Serious: Yes (Other)
  Sender: FDA-Public Use
  Company Number: GB-ALKEM-001258

PATIENT
  Sex: Male

DRUGS (1)
  1. QUETIAPINE/QUETIAPINE FUMARATE [Suspect]
     Active Substance: QUETIAPINE FUMARATE
     Indication: BIPOLAR DISORDER
     Dates: start: 2009

REACTIONS (4)
  - Food interaction [Unknown]
  - Mood swings [Recovering/Resolving]
  - Pre-existing condition improved [Recovering/Resolving]
  - Irritability [Recovering/Resolving]
